FAERS Safety Report 11462973 (Version 1)
Quarter: 2015Q3

REPORT INFORMATION
  Report Type: Spontaneous
  Country: US (occurrence: US)
  Receive Date: 20150831
  Receipt Date: 20150831
  Transmission Date: 20151125
  Serious: No
  Sender: FDA-Public Use
  Company Number: US-ELI_LILLY_AND_COMPANY-US201102005112

PATIENT
  Age: 47 Year
  Sex: Female

DRUGS (7)
  1. CYMBALTA [Interacting]
     Active Substance: DULOXETINE HYDROCHLORIDE
     Dosage: 60 MG, DAILY (1/D)
  2. CYMBALTA [Suspect]
     Active Substance: DULOXETINE HYDROCHLORIDE
     Indication: DEPRESSION
     Dosage: 30 MG, DAILY (1/D)
     Dates: start: 201101
  3. CYMBALTA [Interacting]
     Active Substance: DULOXETINE HYDROCHLORIDE
     Dosage: 60 MG, DAILY (1/D)
     Dates: start: 20110215
  4. NORCO [Concomitant]
     Active Substance: ACETAMINOPHEN\HYDROCODONE BITARTRATE
  5. CYMBALTA [Interacting]
     Active Substance: DULOXETINE HYDROCHLORIDE
     Dosage: 90 MG, DAILY (1/D)
  6. BONIVA [Concomitant]
     Active Substance: IBANDRONATE SODIUM
  7. MAXALT /USA/ [Concomitant]

REACTIONS (11)
  - Intentional product misuse [Not Recovered/Not Resolved]
  - Migraine [Unknown]
  - Agitation [Recovered/Resolved]
  - Logorrhoea [Not Recovered/Not Resolved]
  - Drug interaction [Unknown]
  - Tachyphrenia [Unknown]
  - Flushing [Recovered/Resolved]
  - Palpitations [Recovered/Resolved]
  - Drug ineffective [Recovered/Resolved]
  - Feeling abnormal [Not Recovered/Not Resolved]
  - Insomnia [Recovering/Resolving]

NARRATIVE: CASE EVENT DATE: 20110216
